FAERS Safety Report 9321997 (Version 1)
Quarter: 2013Q2

REPORT INFORMATION
  Report Type: Report from Study
  Country: US (occurrence: US)
  Receive Date: 20130531
  Receipt Date: 20130531
  Transmission Date: 20140414
  Serious: Yes (Other)
  Sender: FDA-Public Use
  Company Number: US-JNJFOC-20130520187

PATIENT
  Sex: Male
  Weight: 97.52 kg

DRUGS (2)
  1. REMICADE [Suspect]
     Indication: RHEUMATOID ARTHRITIS
     Route: 042
  2. COUMADIN [Concomitant]
     Indication: HEART VALVE REPLACEMENT
     Route: 048
     Dates: start: 1993

REACTIONS (1)
  - Bone disorder [Not Recovered/Not Resolved]
